FAERS Safety Report 23035347 (Version 9)
Quarter: 2024Q3

REPORT INFORMATION
  Report Type: Report from Study
  Country: US (occurrence: US)
  Receive Date: 20231005
  Receipt Date: 20240716
  Transmission Date: 20241016
  Serious: No
  Sender: ACADIA PHARMACEUTICALS
  Company Number: US-ACADIA PHARMACEUTICALS INC.-ACA-2023-TRF-004014

PATIENT
  Age: 37 Year
  Sex: Female

DRUGS (28)
  1. DAYBUE [Suspect]
     Active Substance: TROFINETIDE
     Indication: Rett syndrome
     Dosage: 5 MILLILITER, BID
     Route: 048
     Dates: start: 20230910
  2. DAYBUE [Suspect]
     Active Substance: TROFINETIDE
     Dosage: 15 MILLILITER, BID
     Route: 048
  3. DAYBUE [Suspect]
     Active Substance: TROFINETIDE
     Dosage: 10 MILLILITER, BID
     Route: 048
     Dates: start: 20231013
  4. DAYBUE [Suspect]
     Active Substance: TROFINETIDE
     Dosage: 15 MILLILITER, BID
     Route: 048
  5. DAYBUE [Suspect]
     Active Substance: TROFINETIDE
     Dosage: 12.5 MILLILITER BID
     Route: 048
     Dates: start: 20231113
  6. DAYBUE [Suspect]
     Active Substance: TROFINETIDE
     Dosage: 10 MILLILITER, BID
     Route: 048
  7. DAYBUE [Suspect]
     Active Substance: TROFINETIDE
     Dosage: 20 MILLILITER, BID
     Route: 048
     Dates: end: 20231204
  8. DAYBUE [Suspect]
     Active Substance: TROFINETIDE
     Dosage: 10 MILLILITER, BID
     Route: 048
     Dates: start: 20231214
  9. DAYBUE [Suspect]
     Active Substance: TROFINETIDE
     Dosage: TITRATING THE DOSE
     Route: 048
  10. DAYBUE [Suspect]
     Active Substance: TROFINETIDE
     Dosage: 20 MILLILITER, BID
     Route: 048
  11. DAYBUE [Suspect]
     Active Substance: TROFINETIDE
     Dosage: 10 MILLILITER, TID
     Route: 048
  12. DAYBUE [Suspect]
     Active Substance: TROFINETIDE
     Dosage: 20 MILLILITER, BID
     Route: 048
  13. DAYBUE [Suspect]
     Active Substance: TROFINETIDE
     Dosage: 22.5 MILLILITER, BID
     Route: 048
  14. DAYBUE [Suspect]
     Active Substance: TROFINETIDE
     Dosage: 25 MILLILITER
     Route: 048
  15. DAYBUE [Suspect]
     Active Substance: TROFINETIDE
     Dosage: 20 MILLILITER
     Route: 048
  16. DAYBUE [Suspect]
     Active Substance: TROFINETIDE
     Dosage: 22.5 MILLILITER, BID
     Route: 048
     Dates: end: 20240420
  17. DAYBUE [Suspect]
     Active Substance: TROFINETIDE
     Dosage: 22.5 MILLILITER, BID
     Route: 048
  18. DAYBUE [Suspect]
     Active Substance: TROFINETIDE
     Dosage: 10 MILLILITER, BID
     Route: 048
  19. DAYBUE [Suspect]
     Active Substance: TROFINETIDE
     Dosage: 40 MILLILITER, BID
     Route: 048
  20. NAPROXEN [Concomitant]
     Active Substance: NAPROXEN
     Dosage: 10 MILLILITER (125MG/5ML)
  21. XOPENEX [Concomitant]
     Active Substance: LEVALBUTEROL HYDROCHLORIDE
     Dosage: TAKE 3 ML BY NEBULIZATION 4 (FOUR) TIMES A DAY AS NEEDED FOR WHEEZING OR SHORTNESS OF BREATH.
  22. NASONEX [Concomitant]
     Active Substance: MOMETASONE FUROATE
     Dosage: 50MCG/ACTUATION 1 SPRAY INTO EACH NOSTRIL DAILY.
  23. HYDROXYZINE HYDROCHLORIDE [Concomitant]
     Active Substance: HYDROXYZINE HYDROCHLORIDE
     Dosage: 10 MILLIGRAM
     Route: 048
  24. FLOVENT HFA [Concomitant]
     Active Substance: FLUTICASONE PROPIONATE
     Dosage: 110 MCG/ACTUATION INHALE 2 PUFFS 2 (TWO) TIMES A DAY
  25. NEXIUM [Concomitant]
     Active Substance: ESOMEPRAZOLE MAGNESIUM
     Dosage: 40 MILLIGRAM, QD
  26. PROZAC [Concomitant]
     Active Substance: FLUOXETINE HYDROCHLORIDE
     Dosage: 2 MILLILITER (20MG/5ML (4MG/ML)
     Route: 048
  27. BENADRYL [Concomitant]
     Active Substance: DIPHENHYDRAMINE HYDROCHLORIDE
     Dosage: TAKE 5 ML (12.5 MG TOTAL) BY MOUTH NIGHLY
     Route: 048
  28. TYLENOL [Concomitant]
     Active Substance: ACETAMINOPHEN
     Dosage: 15 MG/KG BY MOUTH EVERY 6 (SLX) HOURS AS NEEDED
     Route: 048

REACTIONS (31)
  - Screaming [Recovering/Resolving]
  - Gastrooesophageal reflux disease [Unknown]
  - Product dose omission issue [Unknown]
  - Bruxism [Not Recovered/Not Resolved]
  - Gastrooesophageal reflux disease [Recovered/Resolved]
  - Gastrooesophageal reflux disease [Recovering/Resolving]
  - Gastrooesophageal reflux disease [Not Recovered/Not Resolved]
  - Underdose [Not Recovered/Not Resolved]
  - Mood swings [Recovered/Resolved]
  - Mobility decreased [Not Recovered/Not Resolved]
  - Agitation [Recovered/Resolved]
  - Crying [Recovered/Resolved]
  - Musculoskeletal stiffness [Recovered/Resolved]
  - Musculoskeletal stiffness [Not Recovered/Not Resolved]
  - Constipation [Recovered/Resolved]
  - Somnolence [Not Recovered/Not Resolved]
  - Hunger [Not Recovered/Not Resolved]
  - Prescribed underdose [Not Recovered/Not Resolved]
  - Insomnia [Unknown]
  - Tooth abscess [Unknown]
  - Tooth fracture [Recovered/Resolved]
  - Tooth extraction [Recovered/Resolved]
  - Oral surgery [Recovered/Resolved]
  - Product dose omission issue [Unknown]
  - Tooth extraction [Recovered/Resolved]
  - Diarrhoea [Recovered/Resolved]
  - Diarrhoea [Recovering/Resolving]
  - Fatigue [Recovered/Resolved]
  - Diarrhoea [Recovering/Resolving]
  - Diarrhoea [Not Recovered/Not Resolved]
  - Diarrhoea [Not Recovered/Not Resolved]

NARRATIVE: CASE EVENT DATE: 20230911
